FAERS Safety Report 23061758 (Version 2)
Quarter: 2023Q4

REPORT INFORMATION
  Report Type: Other
  Country: US (occurrence: None)
  Receive Date: 20231013
  Receipt Date: 20231019
  Transmission Date: 20240110
  Serious: Yes (Hospitalization, Other)
  Sender: FDA-Public Use
  Company Number: US-ROCHE-3433088

PATIENT
  Age: 49 Year
  Sex: Male
  Weight: 102.15 kg

DRUGS (4)
  1. OCREVUS [Suspect]
     Active Substance: OCRELIZUMAB
     Indication: Multiple sclerosis relapse
     Dosage: DATE OF TREATMENT: 08/MAR/2021, 01/MAR/2022
     Route: 042
     Dates: start: 20210308, end: 20230221
  2. TECFIDERA [Concomitant]
     Active Substance: DIMETHYL FUMARATE
     Indication: Multiple sclerosis
     Dosage: ORAL TABLET 240 MG TWICE A DAY ONE IN EVENING AND ONE IN MORNING ;ONGOING: YES
     Dates: start: 202309
  3. LISINOPRIL [Concomitant]
     Active Substance: LISINOPRIL
     Indication: Blood cholesterol increased
     Dosage: 10 MG ONCE A DAY, 20 MG ONCE A DAY, 30 MG ONCE A DAY, ONCE A DAY
     Route: 048
  4. AVONEX [Concomitant]
     Active Substance: INTERFERON BETA-1A

REACTIONS (6)
  - Pneumonia [Recovered/Resolved]
  - Sepsis [Recovered/Resolved]
  - Dyspnoea [Recovered/Resolved]
  - Weight decreased [Recovered/Resolved]
  - Sinusitis [Unknown]
  - Somnolence [Unknown]

NARRATIVE: CASE EVENT DATE: 20230501
